FAERS Safety Report 10270160 (Version 2)
Quarter: 2014Q4

REPORT INFORMATION
  Report Type: Spontaneous
  Country: US (occurrence: None)
  Receive Date: 20140626
  Receipt Date: 20141112
  Transmission Date: 20150528
  Serious: Yes (Hospitalization)
  Sender: FDA-Public Use
  Company Number: UNT-2014-002379

PATIENT
  Age: 81 Year
  Sex: Female

DRUGS (2)
  1. REVATIO (SILDENAFIL CITRATE) [Concomitant]
  2. REMODULIN [Suspect]
     Active Substance: TREPROSTINIL
     Indication: PULMONARY ARTERIAL HYPERTENSION
     Dosage: 0.096 UG/KG, CONTINUING, INTRAVENOUS
     Route: 041
     Dates: start: 20090708

REACTIONS (2)
  - Device dislocation [None]
  - Drug dose omission [None]

NARRATIVE: CASE EVENT DATE: 201406
